FAERS Safety Report 4496590-3 (Version None)
Quarter: 2004Q4

REPORT INFORMATION
  Report Type: 
  Country: None (occurrence: None)
  Receive Date: 20041109
  Receipt Date: 20041028
  Transmission Date: 20050328
  Serious: Yes (Hospitalization, Other)
  Sender: FDA-Public Use
  Company Number: JP-BRISTOL-MYERS SQUIBB COMPANY-12748810

PATIENT
  Age: 77 Year
  Sex: Female

DRUGS (2)
  1. BRIPLATIN [Suspect]
     Indication: GASTRIC CANCER RECURRENT
     Route: 041
     Dates: start: 20040827, end: 20040827
  2. TS-1 [Suspect]
     Indication: GASTRIC CANCER RECURRENT
     Dosage: THERAPY DATES: 23-AUG TO 07-SEP-2004
     Route: 048
     Dates: start: 20040907, end: 20040907

REACTIONS (7)
  - ANAEMIA [None]
  - DIARRHOEA [None]
  - NAUSEA [None]
  - PLATELET COUNT DECREASED [None]
  - PYREXIA [None]
  - RENAL FAILURE [None]
  - WHITE BLOOD CELL COUNT DECREASED [None]
